FAERS Safety Report 13459891 (Version 1)
Quarter: 2017Q2

REPORT INFORMATION
  Report Type: Spontaneous
  Country: US (occurrence: US)
  Receive Date: 20170420
  Receipt Date: 20170420
  Transmission Date: 20170830
  Serious: Yes (Hospitalization)
  Sender: FDA-Public Use
  Company Number: US-TEVA-708613USA

PATIENT
  Age: 81 Year
  Sex: Male

DRUGS (18)
  1. MELOXICAM. [Concomitant]
     Active Substance: MELOXICAM
     Dates: end: 20160726
  2. PREDNISONE. [Concomitant]
     Active Substance: PREDNISONE
     Dates: end: 20160628
  3. CIPROFLOXACIN HYDROCHLORIDE. [Concomitant]
     Active Substance: CIPROFLOXACIN HYDROCHLORIDE
     Dates: start: 20160621, end: 20160822
  4. LISINOPRIL. [Concomitant]
     Active Substance: LISINOPRIL
     Dosage: 10 MILLIGRAM DAILY;
  5. PERCOCET [Concomitant]
     Active Substance: ACETAMINOPHEN\OXYCODONE HYDROCHLORIDE
     Dates: start: 20160621, end: 20160822
  6. TAMSULOSIN [Suspect]
     Active Substance: TAMSULOSIN
     Dosage: .8 MILLIGRAM DAILY;
     Route: 065
     Dates: end: 20160726
  7. PERCOCET [Concomitant]
     Active Substance: ACETAMINOPHEN\OXYCODONE HYDROCHLORIDE
     Dosage: 5/325 MG  TWICE DAILY AS NEEDED
  8. CIPROFLOXACIN HYDROCHLORIDE. [Concomitant]
     Active Substance: CIPROFLOXACIN HYDROCHLORIDE
     Dates: start: 20160621, end: 20160822
  9. FINASTERIDE. [Concomitant]
     Active Substance: FINASTERIDE
     Dosage: 5 MILLIGRAM DAILY;
  10. FINASTERIDE. [Concomitant]
     Active Substance: FINASTERIDE
     Dates: start: 20160621, end: 20160822
  11. VITAMIN D3 [Concomitant]
     Active Substance: CHOLECALCIFEROL
     Dates: start: 20160621, end: 20160822
  12. ASPIRIN. [Concomitant]
     Active Substance: ASPIRIN
     Dates: start: 20160621, end: 20160822
  13. LISINOPRIL. [Concomitant]
     Active Substance: LISINOPRIL
     Dates: start: 20160621, end: 20160822
  14. VITAMIN D3 [Concomitant]
     Active Substance: CHOLECALCIFEROL
     Dosage: AS NEEDED
  15. LYRICA [Concomitant]
     Active Substance: PREGABALIN
     Dosage: 75 MILLIGRAM DAILY;
  16. ASPIRIN. [Concomitant]
     Active Substance: ASPIRIN
     Dosage: 81 MILLIGRAM DAILY;
  17. XANAX [Concomitant]
     Active Substance: ALPRAZOLAM
     Dates: start: 20160621, end: 20160822
  18. XANAX [Concomitant]
     Active Substance: ALPRAZOLAM
     Dosage: AS NEEDED

REACTIONS (2)
  - Pain [Unknown]
  - Headache [Unknown]

NARRATIVE: CASE EVENT DATE: 20160413
